FAERS Safety Report 24982195 (Version 2)
Quarter: 2025Q1

REPORT INFORMATION
  Report Type: Report from Study
  Country: US (occurrence: US)
  Receive Date: 20250218
  Receipt Date: 20250307
  Transmission Date: 20250408
  Serious: Yes (Hospitalization)
  Sender: TAKEDA
  Company Number: US-TAKEDA-2022TUS060618

PATIENT
  Sex: Female
  Weight: 64 kg

DRUGS (28)
  1. HUMAN IMMUNOGLOBULIN G [Suspect]
     Active Substance: HUMAN IMMUNOGLOBULIN G
     Indication: Immunodeficiency common variable
     Dosage: 30 GRAM, Q4WEEKS
     Dates: start: 20210925
  2. ACETAMINOPHEN [Concomitant]
     Active Substance: ACETAMINOPHEN
  3. METHENAMINE HIPPURATE [Concomitant]
     Active Substance: METHENAMINE HIPPURATE
  4. METHENAMINE [Concomitant]
     Active Substance: METHENAMINE
  5. DIPHENHYDRAMINE [Concomitant]
     Active Substance: DIPHENHYDRAMINE
  6. SODIUM CHLORIDE [Concomitant]
     Active Substance: SODIUM CHLORIDE
  7. EPINEPHRINE [Concomitant]
     Active Substance: EPINEPHRINE
  8. VITAMIN C [Concomitant]
     Active Substance: ASCORBIC ACID
  9. IPRATROPIUM BROMIDE [Concomitant]
     Active Substance: IPRATROPIUM BROMIDE
  10. LOVENOX [Concomitant]
     Active Substance: ENOXAPARIN SODIUM
  11. GABAPENTIN [Concomitant]
     Active Substance: GABAPENTIN
  12. LIDOCAINE [Concomitant]
     Active Substance: LIDOCAINE
  13. CALCIUM CITRATE\VITAMIN D [Concomitant]
     Active Substance: CALCIUM CITRATE\VITAMIN D
  14. ALIGN [Concomitant]
     Active Substance: BIFIDOBACTERIUM LONGUM SUBSP. INFANTIS
  15. MIRALAX [Concomitant]
     Active Substance: POLYETHYLENE GLYCOL 3350
  16. CEPHALEXIN [Concomitant]
     Active Substance: CEPHALEXIN
  17. ACETAMINOPHEN\HYDROCODONE [Concomitant]
     Active Substance: ACETAMINOPHEN\HYDROCODONE
  18. FEXOFENADINE [Concomitant]
     Active Substance: FEXOFENADINE HYDROCHLORIDE
  19. ROSUVASTATIN CALCIUM [Concomitant]
     Active Substance: ROSUVASTATIN CALCIUM
  20. VITAMIN D3 [Concomitant]
     Active Substance: CHOLECALCIFEROL
  21. Glucosamine/chondroitin [Concomitant]
  22. PFIZER-BIONTECH COVID-19 VACCINE [Concomitant]
     Active Substance: TOZINAMERAN
  23. DIPHENHYDRAMINE HYDROCHLORIDE [Concomitant]
     Active Substance: DIPHENHYDRAMINE HYDROCHLORIDE
  24. FEXOFENADINE HYDROCHLORIDE [Concomitant]
     Active Substance: FEXOFENADINE HYDROCHLORIDE
  25. Maxim [Concomitant]
  26. ANORO ELLIPTA [Concomitant]
     Active Substance: UMECLIDINIUM BROMIDE\VILANTEROL TRIFENATATE
  27. VITAMINS [Concomitant]
     Active Substance: VITAMINS
  28. ASPIRIN [Concomitant]
     Active Substance: ASPIRIN

REACTIONS (5)
  - Ankle fracture [Unknown]
  - Fall [Unknown]
  - COVID-19 [Unknown]
  - Illness [Unknown]
  - Hypertension [Unknown]
